FAERS Safety Report 8499116-2 (Version None)
Quarter: 2012Q2

REPORT INFORMATION
  Report Type: 
  Country: None (occurrence: None)
  Receive Date: 20120405
  Receipt Date: 20100212
  Transmission Date: 20120825
  Serious: Yes (Hospitalization)
  Sender: FDA-Public Use
  Company Number: PHHY2010US10259

PATIENT
  Age: 80 Year
  Sex: Female

DRUGS (1)
  1. RECLAST [Suspect]
     Dosage: 5 MG PER YEAR, INJECTION NOS

REACTIONS (3)
  - OEDEMA [None]
  - INFLUENZA LIKE ILLNESS [None]
  - BLOOD CREATININE INCREASED [None]
